FAERS Safety Report 9256081 (Version 1)
Quarter: 2013Q2

REPORT INFORMATION
  Report Type: Spontaneous
  Country: US (occurrence: US)
  Receive Date: 20130425
  Receipt Date: 20130425
  Transmission Date: 20140414
  Serious: No
  Sender: FDA-Public Use
  Company Number: US-AMGEN-USASP2011030260

PATIENT
  Age: 51 Year
  Sex: Female
  Weight: 96 kg

DRUGS (6)
  1. NEULASTA [Suspect]
     Indication: CHEMOTHERAPY
     Dosage: 6 MG, Q2WK
     Route: 058
     Dates: start: 20110415, end: 20110722
  2. NEULASTA [Suspect]
     Dosage: 3 MG, Q2WK
     Route: 058
  3. TAXOL [Concomitant]
     Indication: ADJUVANT THERAPY
     Dosage: 373 MG, Q2WK
     Route: 042
     Dates: start: 20110609, end: 20110721
  4. TAXOL [Concomitant]
     Dosage: 350 MG, Q2WK
  5. CYTOXAN [Concomitant]
     Indication: ADJUVANT THERAPY
     Dosage: 115 MG, Q2WK
     Route: 042
     Dates: start: 20110414, end: 20110526
  6. ADRIAMYCIN [Concomitant]
     Indication: ADJUVANT THERAPY
     Dosage: 1250 MG, Q2WK
     Route: 042
     Dates: start: 20110414, end: 20110526

REACTIONS (7)
  - Gait disturbance [Recovered/Resolved]
  - Tearfulness [Recovered/Resolved]
  - Pain in extremity [Recovered/Resolved]
  - Pain [Recovered/Resolved]
  - Insomnia [Recovered/Resolved]
  - Arthralgia [Recovered/Resolved]
  - Myalgia [Recovered/Resolved]
